FAERS Safety Report 14692729 (Version 1)
Quarter: 2018Q1

REPORT INFORMATION
  Report Type: Spontaneous
  Country: IE (occurrence: IE)
  Receive Date: 20180329
  Receipt Date: 20180329
  Transmission Date: 20180509
  Serious: Yes (Congenital Anomaly)
  Sender: FDA-Public Use
  Company Number: IE-ABBVIE-18S-229-2303119-00

PATIENT

DRUGS (1)
  1. VALPROATE SODIUM. [Suspect]
     Active Substance: VALPROATE SODIUM
     Indication: MATERNAL EXPOSURE TIMING UNSPECIFIED
     Route: 064

REACTIONS (25)
  - Hypertrophic cardiomyopathy [Unknown]
  - Joint dislocation [Unknown]
  - Atrial septal defect [Unknown]
  - Prominent epicanthal folds [Unknown]
  - Micrognathia [Unknown]
  - Talipes [Unknown]
  - Dysmorphism [Unknown]
  - Limb deformity [Unknown]
  - Hypospadias [Unknown]
  - Cleft palate [Unknown]
  - Attention deficit/hyperactivity disorder [Unknown]
  - Developmental delay [Unknown]
  - Meningomyelocele [Unknown]
  - Aplasia [Unknown]
  - Limb hypoplasia congenital [Unknown]
  - Limb reduction defect [Unknown]
  - Syndactyly [Unknown]
  - Foetal exposure during pregnancy [Unknown]
  - Autism spectrum disorder [Unknown]
  - Nose deformity [Unknown]
  - Abnormal behaviour [Unknown]
  - Skin hypoplasia [Unknown]
  - Joint contracture [Unknown]
  - Congenital limb hyperextension [Unknown]
  - Craniosynostosis [Unknown]
